FAERS Safety Report 8166696-6 (Version None)
Quarter: 2012Q1

REPORT INFORMATION
  Report Type: 
  Country: None (occurrence: None)
  Receive Date: 20120227
  Receipt Date: 20120213
  Transmission Date: 20120608
  Serious: Yes (Life-Threatening)
  Sender: FDA-Public Use
  Company Number: CH-MYLANLABS-2012S1003555

PATIENT
  Age: 92 Year
  Sex: Female

DRUGS (6)
  1. AMANTADINE HCL [Concomitant]
     Route: 065
  2. HALOPERIDOL [Suspect]
     Indication: RESTLESSNESS
     Dosage: 0.6MG DAILY
     Route: 065
  3. BISOPROLOL FUMARATE [Concomitant]
     Dosage: 2.5MG
     Route: 065
  4. HALOPERIDOL [Suspect]
     Indication: AGITATION
     Dosage: 0.6MG DAILY
     Route: 065
  5. LEVODOPA [Concomitant]
     Route: 065
  6. BENSERAZIDE [Concomitant]
     Route: 065

REACTIONS (3)
  - ATRIOVENTRICULAR BLOCK COMPLETE [None]
  - TORSADE DE POINTES [None]
  - ELECTROCARDIOGRAM QT PROLONGED [None]
